FAERS Safety Report 10206444 (Version 1)
Quarter: 2014Q2

REPORT INFORMATION
  Report Type: Spontaneous
  Country: US (occurrence: None)
  Receive Date: 20140527
  Receipt Date: 20140527
  Transmission Date: 20141212
  Serious: Yes (Hospitalization)
  Sender: FDA-Public Use
  Company Number: CC400218946

PATIENT
  Age: 7 Year
  Sex: Male

DRUGS (1)
  1. CEFTRIAXONE AND DEXTROSE [Suspect]

REACTIONS (3)
  - Renal failure acute [None]
  - Hydronephrosis [None]
  - Cholelithiasis [None]
